FAERS Safety Report 23672834 (Version 2)
Quarter: 2024Q2

REPORT INFORMATION
  Report Type: Spontaneous
  Country: US (occurrence: US)
  Receive Date: 20240326
  Receipt Date: 20240415
  Transmission Date: 20240716
  Serious: Yes (Life-Threatening, Hospitalization)
  Sender: FDA-Public Use
  Company Number: US-TEVA-VS-3173867

PATIENT
  Age: 60 Year
  Sex: Female

DRUGS (1)
  1. TRANEXAMIC ACID [Suspect]
     Active Substance: TRANEXAMIC ACID
     Indication: Haemoptysis
     Dosage: NEBULISED
     Route: 065

REACTIONS (4)
  - Thrombosis [Recovered/Resolved]
  - Laryngeal disorder [Recovered/Resolved]
  - Obstructive airways disorder [Recovered/Resolved]
  - Cyanosis [Recovered/Resolved]
